FAERS Safety Report 8605820-5 (Version None)
Quarter: 2012Q3

REPORT INFORMATION
  Report Type: 
  Country: None (occurrence: None)
  Receive Date: 20120820
  Receipt Date: 20120814
  Transmission Date: 20120928
  Serious: Yes (Death, Disabling)
  Sender: FDA-Public Use
  Company Number: US-GLAXOSMITHKLINE-A0987796A

PATIENT
  Age: 70 Year
  Sex: Male

DRUGS (4)
  1. ZOFRAN [Concomitant]
  2. INVANZ [Concomitant]
  3. ARIXTRA [Suspect]
     Indication: PRODUCT USED FOR UNKNOWN INDICATION
     Dosage: 7.5U UNKNOWN
     Route: 065
     Dates: start: 20110809, end: 20120601
  4. TOPOTECAN HYDROCHLORIDE [Concomitant]

REACTIONS (3)
  - FAILURE TO THRIVE [None]
  - MALAISE [None]
  - LUNG NEOPLASM MALIGNANT [None]
